FAERS Safety Report 9822875 (Version 1)
Quarter: 2014Q1

REPORT INFORMATION
  Report Type: Spontaneous
  Country: IT (occurrence: IT)
  Receive Date: 20140116
  Receipt Date: 20140116
  Transmission Date: 20141002
  Serious: Yes (Other)
  Sender: FDA-Public Use
  Company Number: PHHY2014IT003058

PATIENT
  Age: 75 Year
  Sex: Male

DRUGS (3)
  1. MANIDIPINE [Suspect]
     Dates: start: 20121003, end: 20131002
  2. OMEPRAZOLE [Suspect]
  3. BIFRIZIDE [Suspect]
     Dosage: UNK
     Dates: start: 20121003, end: 20131002

REACTIONS (1)
  - Syncope [Recovering/Resolving]
